FAERS Safety Report 5507484-6 (Version None)
Quarter: 2007Q4

REPORT INFORMATION
  Report Type: 
  Country: None (occurrence: None)
  Receive Date: 20071106
  Receipt Date: 20071029
  Transmission Date: 20080405
  Serious: Yes (Other)
  Sender: FDA-Public Use
  Company Number: US-BAYER-200713656BWH

PATIENT
  Age: 48 Year
  Sex: Male
  Weight: 85 kg

DRUGS (9)
  1. AVELOX [Suspect]
     Indication: SINUSITIS
     Route: 048
     Dates: start: 20071001, end: 20071003
  2. VIDEX EC [Concomitant]
  3. KALETRA [Concomitant]
  4. ZIAGEN [Concomitant]
  5. MS CONTIN [Concomitant]
  6. ACYCLOVIR [Concomitant]
  7. MAXALT [Concomitant]
  8. PREDNISONE TAB [Concomitant]
  9. NEURONTIN [Concomitant]

REACTIONS (13)
  - APHASIA [None]
  - BURNING SENSATION [None]
  - EYE DISORDER [None]
  - MUSCULAR WEAKNESS [None]
  - MYALGIA [None]
  - NIGHT SWEATS [None]
  - PAIN IN EXTREMITY [None]
  - PAIN OF SKIN [None]
  - PHOTOPSIA [None]
  - RASH [None]
  - RETINAL DETACHMENT [None]
  - VISION BLURRED [None]
  - VISUAL DISTURBANCE [None]
